FAERS Safety Report 9193752 (Version 2)
Quarter: 2013Q2

REPORT INFORMATION
  Report Type: Spontaneous
  Country: DE (occurrence: DE)
  Receive Date: 20130327
  Receipt Date: 20130423
  Transmission Date: 20140414
  Serious: Yes (Hospitalization, Other)
  Sender: FDA-Public Use
  Company Number: DE-AMGEN-DEUSP2013015381

PATIENT
  Age: 70 Year
  Sex: Female
  Weight: 51 kg

DRUGS (5)
  1. PROLIA [Suspect]
     Indication: OSTEOPOROSIS
     Dosage: 60 MG, Q6MO
     Dates: start: 20110217, end: 201208
  2. L-THYROXIN [Concomitant]
     Indication: HYPOTHYROIDISM
     Dosage: 25 MUG, QD
     Route: 048
  3. IRBESARTAN [Concomitant]
     Indication: HYPERTENSION
     Dosage: 300 MG, QD
     Route: 048
  4. CALCIUM [Concomitant]
     Indication: OSTEOPOROSIS
     Dosage: 600 MG, QD
     Route: 048
     Dates: start: 20110218
  5. VITAMIN D /00107901/ [Concomitant]
     Indication: OSTEOPOROSIS
     Dosage: 1000 IE, QD
     Route: 048
     Dates: start: 20110218

REACTIONS (6)
  - Dermatitis contact [Recovering/Resolving]
  - Squamous cell carcinoma [Recovered/Resolved]
  - Actinic keratosis [Recovering/Resolving]
  - Urinary tract infection [Recovered/Resolved]
  - Beta globulin increased [Unknown]
  - Skin infection [Unknown]
